FAERS Safety Report 16442293 (Version 1)
Quarter: 2019Q2

REPORT INFORMATION
  Report Type: Report from Study
  Country: None (occurrence: US)
  Receive Date: 20190617
  Receipt Date: 20190617
  Transmission Date: 20190711
  Serious: No
  Sender: FDA-Public Use
  Company Number: US-US WORLDMEDS, LLC-USW201903-000551

PATIENT
  Age: 84 Year
  Sex: Male

DRUGS (27)
  1. CLOBETASOL PROPIONATE. [Concomitant]
     Active Substance: CLOBETASOL PROPIONATE
  2. VOLTAREN [Concomitant]
     Active Substance: DICLOFENAC SODIUM
  3. IPRATROPIUM BROMIDE. [Concomitant]
     Active Substance: IPRATROPIUM BROMIDE
  4. XADAGO [Concomitant]
     Active Substance: SAFINAMIDE MESYLATE
  5. HYDROCODONE-ACETAMINOP [Concomitant]
  6. MIDODRINE [Concomitant]
     Active Substance: MIDODRINE
  7. GABAPENTIN. [Concomitant]
     Active Substance: GABAPENTIN
  8. ROPINIROLE ER [Concomitant]
     Active Substance: ROPINIROLE
  9. IBUPROFEN. [Concomitant]
     Active Substance: IBUPROFEN
  10. DUTASTERIDE. [Concomitant]
     Active Substance: DUTASTERIDE
  11. APOKYN [Suspect]
     Active Substance: APOMORPHINE HYDROCHLORIDE
     Indication: PARKINSON^S DISEASE
     Dosage: DO NOT EXCEED FIVE DOSES PER DAY
     Route: 058
  12. ADVIL [Concomitant]
     Active Substance: IBUPROFEN
  13. LEVOFLOXACIN. [Concomitant]
     Active Substance: LEVOFLOXACIN
  14. PREDNISONE. [Concomitant]
     Active Substance: PREDNISONE
  15. AMOXICILLIN. [Concomitant]
     Active Substance: AMOXICILLIN
  16. NORTHERA [Suspect]
     Active Substance: DROXIDOPA
  17. FENTANYL. [Concomitant]
     Active Substance: FENTANYL
  18. CLONAZEPAM. [Concomitant]
     Active Substance: CLONAZEPAM
  19. AMOXICILLIN-CLAVULANAT [Concomitant]
  20. AMANTADINE. [Concomitant]
     Active Substance: AMANTADINE HYDROCHLORIDE
  21. RIVASTIGMINE. [Concomitant]
     Active Substance: RIVASTIGMINE
  22. RYTARY [Concomitant]
     Active Substance: CARBIDOPA\LEVODOPA
  23. BENZONATATE. [Concomitant]
     Active Substance: BENZONATATE
  24. OMEPRAZOLE. [Concomitant]
     Active Substance: OMEPRAZOLE
  25. TAMSULOSIN [Concomitant]
     Active Substance: TAMSULOSIN
  26. EXELON [Concomitant]
     Active Substance: RIVASTIGMINE TARTRATE
  27. OXYCODONE-ACETAMINOPHEN [Concomitant]
     Active Substance: ACETAMINOPHEN\OXYCODONE HYDROCHLORIDE

REACTIONS (3)
  - Adverse event [Unknown]
  - Muscular weakness [Unknown]
  - Dyspnoea [Unknown]

NARRATIVE: CASE EVENT DATE: 201902
